FAERS Safety Report 10866853 (Version 1)
Quarter: 2015Q1

REPORT INFORMATION
  Report Type: Spontaneous
  Country: GB (occurrence: None)
  Receive Date: 20150220
  Receipt Date: 20150220
  Transmission Date: 20150721
  Serious: Yes (Hospitalization)
  Sender: FDA-Public Use
  Company Number: None

PATIENT
  Age: 4 Year
  Sex: Male
  Weight: 17 kg

DRUGS (1)
  1. CALPOL [Suspect]
     Active Substance: ACETAMINOPHEN

REACTIONS (9)
  - Angioedema [None]
  - Abdominal pain [None]
  - Lip swelling [None]
  - Urticaria [None]
  - Drug hypersensitivity [None]
  - Viral infection [None]
  - Nausea [None]
  - Vomiting [None]
  - Swelling face [None]

NARRATIVE: CASE EVENT DATE: 20150211
